FAERS Safety Report 13437672 (Version 1)
Quarter: 2017Q2

REPORT INFORMATION
  Report Type: Spontaneous
  Country: US (occurrence: US)
  Receive Date: 20170413
  Receipt Date: 20170413
  Transmission Date: 20170830
  Serious: No
  Sender: FDA-Public Use
  Company Number: US-SA-2017SA004462

PATIENT
  Age: 44 Year
  Sex: Male

DRUGS (1)
  1. ALLEGRA-D 24 HOUR [Suspect]
     Active Substance: FEXOFENADINE HYDROCHLORIDE\PSEUDOEPHEDRINE HYDROCHLORIDE
     Indication: MULTIPLE ALLERGIES
     Dosage: STRENGTH: FEXOFENADINE HCL 180MG AND PSEUDOEPHEDRINE HCL 240MG
     Route: 065
     Dates: start: 201612, end: 201612

REACTIONS (1)
  - Drug ineffective [Unknown]
